FAERS Safety Report 7091806-1 (Version None)
Quarter: 2010Q4

REPORT INFORMATION
  Report Type: 
  Country: None (occurrence: None)
  Receive Date: 20101109
  Receipt Date: 20101029
  Transmission Date: 20110411
  Serious: Yes (Hospitalization, Other)
  Sender: FDA-Public Use
  Company Number: US-CELGENEUS-163-20785-10062004

PATIENT
  Sex: Female
  Weight: 95.34 kg

DRUGS (33)
  1. THALOMID [Suspect]
     Indication: MULTIPLE MYELOMA
     Route: 048
     Dates: start: 20061113, end: 20061207
  2. THALOMID [Suspect]
     Route: 048
     Dates: start: 20091007, end: 20091101
  3. MELPHALAN HYDROCHLORIDE [Concomitant]
     Indication: MULTIPLE MYELOMA
     Route: 048
     Dates: start: 20091007
  4. PREDNISONE [Concomitant]
     Indication: MULTIPLE MYELOMA
     Route: 048
     Dates: start: 20091007
  5. METOPROLOL [Concomitant]
     Route: 048
     Dates: start: 20091201
  6. DEXAMETHASONE [Concomitant]
     Indication: MULTIPLE MYELOMA
     Route: 065
     Dates: start: 20061113
  7. ESTRADIOL [Concomitant]
     Indication: POSTMENOPAUSE
     Route: 065
  8. NORMAL SALINE [Concomitant]
     Dosage: 200
     Route: 051
     Dates: start: 20061201
  9. PRINIVIL [Concomitant]
     Route: 065
  10. BACTRIM DS [Concomitant]
     Route: 048
  11. BACTRIM DS [Concomitant]
     Route: 051
     Dates: start: 20091101
  12. ASPIRIN [Concomitant]
     Route: 065
  13. COLACE [Concomitant]
     Route: 065
  14. NOVOLOG [Concomitant]
     Dosage: SLIDING SCALE
     Route: 065
  15. SYNTHROID [Concomitant]
     Route: 048
  16. MULTI-VITAMINS [Concomitant]
     Dosage: 1
     Route: 065
  17. PERCOCET [Concomitant]
     Dosage: 1-2
     Route: 065
  18. DULCOLAX [Concomitant]
     Route: 065
  19. GLUCOTROL [Concomitant]
     Route: 065
  20. FLEET'S ENEMA [Concomitant]
     Route: 054
  21. PAMIDRONATE DISODIUM [Concomitant]
     Route: 051
  22. DIAZEPAM [Concomitant]
     Route: 065
  23. DARVOCET [Concomitant]
     Route: 065
  24. SIMVASTATIN [Concomitant]
     Route: 065
  25. WARFARIN [Concomitant]
     Route: 065
  26. TYLENOL [Concomitant]
     Route: 065
  27. LISINOPRIL [Concomitant]
     Route: 065
  28. OXYCODONE HCL AND ACETAMINOPHEN [Concomitant]
     Dosage: 1-2
     Route: 065
  29. OXYCODONE HCL [Concomitant]
     Route: 065
  30. PROCHLORPERAZINE [Concomitant]
     Indication: NAUSEA
     Route: 065
  31. PROCHLORPERAZINE [Concomitant]
     Route: 065
  32. ACTIFED [Concomitant]
     Route: 048
  33. IMODIUM [Concomitant]
     Route: 065

REACTIONS (6)
  - ACIDOSIS [None]
  - GASTROINTESTINAL HAEMORRHAGE [None]
  - HYPERGLYCAEMIA [None]
  - HYPERKALAEMIA [None]
  - HYPOGLYCAEMIA [None]
  - THROMBOCYTOPENIA [None]
